FAERS Safety Report 4520156-X (Version None)
Quarter: 2004Q4

REPORT INFORMATION
  Report Type: 
  Country: None (occurrence: None)
  Receive Date: 20041029
  Receipt Date: 20040630
  Transmission Date: 20050328
  Serious: No
  Sender: FDA-Public Use
  Company Number: WAES 0406USA00597

PATIENT
  Age: 63 Year
  Sex: Female

DRUGS (4)
  1. EMEND [Suspect]
     Dosage: PO
     Route: 048
  2. ANTINEOPLASTIC (UNSPECIFIED) [Concomitant]
  3. FLUOROURACIL [Concomitant]
  4. LEUCOVORIN CALCIUM [Concomitant]

REACTIONS (3)
  - ABDOMINAL DISCOMFORT [None]
  - NAUSEA [None]
  - STOMACH DISCOMFORT [None]
